FAERS Safety Report 15654077 (Version 1)
Quarter: 2018Q4

REPORT INFORMATION
  Report Type: Spontaneous
  Country: US (occurrence: US)
  Receive Date: 20181125
  Receipt Date: 20181125
  Transmission Date: 20190205
  Serious: Yes (Other)
  Sender: FDA-Public Use
  Company Number: None

PATIENT
  Age: 30 Year
  Sex: Male
  Weight: 87.75 kg

DRUGS (4)
  1. SELENIUM [Concomitant]
     Active Substance: SELENIUM
  2. MONTELUKAST [Suspect]
     Active Substance: MONTELUKAST SODIUM
     Indication: SEASONAL ALLERGY
     Dosage: ?          QUANTITY:30 TABLET(S);?
     Route: 048
     Dates: start: 20181005, end: 20181017
  3. ASHWAGANDHA [Concomitant]
     Active Substance: HERBALS
  4. MAGNESSIUM [Concomitant]

REACTIONS (7)
  - Muscle fatigue [None]
  - Depression [None]
  - Anxiety [None]
  - Panic attack [None]
  - Abdominal pain upper [None]
  - Nightmare [None]
  - Insomnia [None]

NARRATIVE: CASE EVENT DATE: 20181011
